FAERS Safety Report 9066293 (Version 1)
Quarter: 2013Q1

REPORT INFORMATION
  Report Type: Report from Study
  Country: US (occurrence: US)
  Receive Date: 20130131
  Receipt Date: 20130131
  Transmission Date: 20140127
  Serious: No
  Sender: FDA-Public Use
  Company Number: US-ABBOTT-12P-163-1009003-00

PATIENT
  Sex: Female
  Weight: 46.31 kg

DRUGS (6)
  1. HUMIRA [Suspect]
     Indication: COLITIS ULCERATIVE
     Dates: start: 201205, end: 201207
  2. HUMIRA [Suspect]
     Dates: start: 201208
  3. COLAZAL [Concomitant]
     Indication: COLITIS ULCERATIVE
  4. CORTISONE [Concomitant]
     Indication: COLITIS ULCERATIVE
  5. CANASA [Concomitant]
     Indication: COLITIS ULCERATIVE
  6. CHOLESTYRAMINE [Concomitant]
     Indication: COLITIS ULCERATIVE

REACTIONS (3)
  - Haematochezia [Recovered/Resolved]
  - Frequent bowel movements [Recovered/Resolved]
  - Drug effect decreased [Recovered/Resolved]
